FAERS Safety Report 16904684 (Version 1)
Quarter: 2019Q4

REPORT INFORMATION
  Report Type: Spontaneous
  Country: GB (occurrence: GB)
  Receive Date: 20191010
  Receipt Date: 20191010
  Transmission Date: 20200122
  Serious: Yes (Other)
  Sender: FDA-Public Use
  Company Number: GB-MYLANLABS-2019M1094751

PATIENT
  Age: 91 Year
  Sex: Female
  Weight: 47.9 kg

DRUGS (3)
  1. TRIOMEL [Suspect]
     Active Substance: AMINO ACIDS\DEXTROSE\ELECTROLYTES NOS\SOYBEAN OIL
     Indication: OBSTRUCTION GASTRIC
     Dosage: PERIPHERAL MIDLINE CONTINUOUS INFUSION, COMMENCED AT 30 ML/HR ON DAY 1 OF REGIMEN
     Route: 042
     Dates: start: 20190617, end: 20190618
  2. AMOXICILLIN/CLAVULANIC ACID [Suspect]
     Active Substance: AMOXICILLIN\CLAVULANIC ACID
     Indication: PRODUCT USED FOR UNKNOWN INDICATION
     Dosage: 1875 MILLIGRAM, QD
     Route: 048
     Dates: start: 20190611, end: 20190613
  3. OMEPRAZOLE. [Suspect]
     Active Substance: OMEPRAZOLE
     Indication: PRODUCT USED FOR UNKNOWN INDICATION
     Dosage: 40 MILLIGRAM
     Route: 042
     Dates: start: 20190614

REACTIONS (2)
  - Dyschezia [Not Recovered/Not Resolved]
  - Diarrhoea [Not Recovered/Not Resolved]

NARRATIVE: CASE EVENT DATE: 20190617
